FAERS Safety Report 7544436-9 (Version None)
Quarter: 2011Q2

REPORT INFORMATION
  Report Type: 
  Country: None (occurrence: None)
  Receive Date: 20110613
  Receipt Date: 20091008
  Transmission Date: 20111010
  Serious: Yes (Death)
  Sender: FDA-Public Use
  Company Number: PHHY2008JP16313

PATIENT
  Sex: Female
  Weight: 50 kg

DRUGS (7)
  1. SEROTONE [Concomitant]
     Indication: BREAST CANCER
     Dosage: 10 MG, UNK
     Route: 042
     Dates: start: 20060926, end: 20070326
  2. DECADRON [Concomitant]
     Indication: BREAST CANCER
     Dosage: 8 MG, UNK
     Route: 042
     Dates: start: 20060926, end: 20070326
  3. ZOMETA [Suspect]
     Dosage: 4 MG, EVERY 4 WEEKS
     Route: 042
     Dates: start: 20060926, end: 20070319
  4. AROMASIN [Concomitant]
     Dosage: UNK
     Route: 048
     Dates: start: 20041215, end: 20060914
  5. FEMARA [Suspect]
     Indication: BREAST CANCER
     Dosage: 2.5 MG, UNK
     Route: 048
     Dates: start: 20060921, end: 20070530
  6. LOXONIN [Concomitant]
     Indication: BREAST CANCER
     Dosage: 180 MG, UNK
     Route: 048
     Dates: start: 20060921, end: 20070530
  7. NAVELBINE [Concomitant]
     Indication: BREAST CANCER
     Dosage: 25 MG, UNK
     Route: 042
     Dates: start: 20060926, end: 20070326

REACTIONS (2)
  - PLEURAL EFFUSION [None]
  - RESPIRATORY FAILURE [None]
